FAERS Safety Report 5686800-9 (Version None)
Quarter: 2008Q1

REPORT INFORMATION
  Report Type: 
  Country: None (occurrence: None)
  Receive Date: 20080328
  Receipt Date: 20070625
  Transmission Date: 20080703
  Serious: No
  Sender: FDA-Public Use
  Company Number: US-BAYER-US-2007-023838

PATIENT
  Sex: Female
  Weight: 64 kg

DRUGS (3)
  1. MIRENA [Suspect]
     Indication: CONTRACEPTION
     Route: 015
     Dates: start: 20070606
  2. PRILOSEC [Concomitant]
  3. PROZAC [Concomitant]

REACTIONS (3)
  - ABDOMINAL PAIN [None]
  - METRORRHAGIA [None]
  - PROCEDURAL PAIN [None]
